FAERS Safety Report 17234745 (Version 1)
Quarter: 2020Q1

REPORT INFORMATION
  Report Type: Spontaneous
  Country: US (occurrence: US)
  Receive Date: 20200106
  Receipt Date: 20200106
  Transmission Date: 20200409
  Serious: No
  Sender: FDA-Public Use
  Company Number: US-UCBSA-2014021253

PATIENT
  Sex: Female

DRUGS (1)
  1. CIMZIA [Suspect]
     Active Substance: CERTOLIZUMAB PEGOL
     Indication: RHEUMATOID ARTHRITIS
     Dosage: 1  200 MG SYRINGE, EV 2 WEEKS(QOW)
     Dates: start: 2014, end: 201409

REACTIONS (3)
  - Adverse drug reaction [Unknown]
  - Unevaluable event [Unknown]
  - Dysarthria [Unknown]

NARRATIVE: CASE EVENT DATE: 2014
